FAERS Safety Report 20011175 (Version 1)
Quarter: 2021Q4

REPORT INFORMATION
  Report Type: Spontaneous
  Country: HR (occurrence: HR)
  Receive Date: 20211029
  Receipt Date: 20211029
  Transmission Date: 20220303
  Serious: Yes (Other)
  Sender: FDA-Public Use
  Company Number: None

PATIENT
  Age: 16 Year
  Sex: Female
  Weight: 65 kg

DRUGS (2)
  1. IBUPROFEN [Suspect]
     Active Substance: IBUPROFEN
     Indication: Product used for unknown indication
     Dosage: 72 GRAM, QD, 360 TABLETA ANVILA OD 200 MG
     Route: 048
     Dates: start: 20210509, end: 20210509
  2. IBUPROFEN [Suspect]
     Active Substance: IBUPROFEN
     Dosage: 18 GRAM, QD, 30 TBL IBUPROFENA OD 600 MG
     Route: 048
     Dates: start: 20210509, end: 20210509

REACTIONS (4)
  - Intentional overdose [Unknown]
  - Suicide attempt [Unknown]
  - Scleral discolouration [Unknown]
  - Vomiting [Unknown]

NARRATIVE: CASE EVENT DATE: 20210510
